FAERS Safety Report 24341661 (Version 1)
Quarter: 2024Q3

REPORT INFORMATION
  Report Type: Spontaneous
  Country: US (occurrence: US)
  Receive Date: 20240920
  Receipt Date: 20240920
  Transmission Date: 20241016
  Serious: No
  Sender: MERCK
  Company Number: US-009507513-2409USA000475

PATIENT
  Sex: Female
  Weight: 47.6 kg

DRUGS (23)
  1. WINREVAIR [Suspect]
     Active Substance: SOTATERCEPT-CSRK
     Indication: Product used for unknown indication
     Route: 058
  2. TYVASO DPI [Suspect]
     Active Substance: TREPROSTINIL
     Indication: Pulmonary arterial hypertension
     Dosage: 64 MICROGRAM, QID
     Dates: start: 20221013
  3. ATORVASTATIN CALCIUM [Concomitant]
     Active Substance: ATORVASTATIN CALCIUM
  4. ADEMPAS [Concomitant]
     Active Substance: RIOCIGUAT
  5. ALLEGRA ALLERGY [Concomitant]
     Active Substance: FEXOFENADINE HYDROCHLORIDE
  6. MYCOPHENOLATE MOFETIL [Concomitant]
     Active Substance: MYCOPHENOLATE MOFETIL
  7. OPSUMIT [Concomitant]
     Active Substance: MACITENTAN
  8. GREEN TEA LEAF EXTRACT [Concomitant]
  9. AZELASTINE HYDROCHLORIDE [Concomitant]
     Active Substance: AZELASTINE HYDROCHLORIDE
  10. ALBUTEROL SULFATE [Concomitant]
     Active Substance: ALBUTEROL SULFATE
  11. LASIX [Concomitant]
     Active Substance: FUROSEMIDE
  12. PANTOPRAZOLE SODIUM [Concomitant]
     Active Substance: PANTOPRAZOLE SODIUM
  13. IMODIUM MULTI-SYMPTOM RELIEF [Concomitant]
     Active Substance: DIMETHICONE\LOPERAMIDE HYDROCHLORIDE
  14. OFEV [Concomitant]
     Active Substance: NINTEDANIB
  15. VITAMIN C [Concomitant]
     Active Substance: ASCORBIC ACID
  16. OXYGEN [Concomitant]
     Active Substance: OXYGEN
  17. SPIRONOLACTONE [Concomitant]
     Active Substance: SPIRONOLACTONE
  18. ASPIRIN [Concomitant]
     Active Substance: ASPIRIN
  19. GINGER ROOT [ZINGIBER OFFICINALE RHIZOME] [Concomitant]
  20. OSTEO-BI-FLEX [Concomitant]
  21. MUCINEX [Concomitant]
     Active Substance: GUAIFENESIN
  22. FERROUS SULFATE [Concomitant]
     Active Substance: FERROUS SULFATE
  23. LOPERAMIDE HYDROCHLORIDE [Concomitant]
     Active Substance: LOPERAMIDE HYDROCHLORIDE

REACTIONS (5)
  - Nasal congestion [Unknown]
  - Fatigue [Unknown]
  - Injection site swelling [Unknown]
  - Injection site erythema [Unknown]
  - Spider vein [Unknown]
